FAERS Safety Report 6196275-1 (Version None)
Quarter: 2009Q2

REPORT INFORMATION
  Report Type: 
  Country: None (occurrence: None)
  Receive Date: 20090515
  Receipt Date: 20080714
  Transmission Date: 20091009
  Serious: Yes (Hospitalization)
  Sender: FDA-Public Use
  Company Number: 08-206

PATIENT
  Age: 28 Year
  Sex: Female
  Weight: 119 kg

DRUGS (6)
  1. FAZACLO ODT [Suspect]
     Indication: SCHIZOPHRENIA
     Dosage: 325 MG QHS PO
     Route: 048
  2. WELLBUTRIN XL [Concomitant]
  3. LEXAPRO [Concomitant]
  4. ATIVAN [Concomitant]
  5. LAMICTAL [Concomitant]
  6. BENZTROPINE [Concomitant]

REACTIONS (1)
  - PERICARDITIS [None]
